FAERS Safety Report 10353281 (Version 4)
Quarter: 2014Q4

REPORT INFORMATION
  Report Type: Report from Study
  Country: CA (occurrence: CA)
  Receive Date: 20140731
  Receipt Date: 20141021
  Transmission Date: 20150528
  Serious: Yes (Hospitalization, Other)
  Sender: FDA-Public Use
  Company Number: PHHY2014CA093036

PATIENT
  Age: 41 Year
  Sex: Female

DRUGS (2)
  1. CLOZARIL [Suspect]
     Active Substance: CLOZAPINE
     Dosage: 375 MG,
     Route: 048
     Dates: start: 2012, end: 20141013
  2. CLOZARIL [Suspect]
     Active Substance: CLOZAPINE
     Indication: SCHIZOPHRENIA
     Dosage: UNK
     Route: 048
     Dates: start: 20110914

REACTIONS (3)
  - Gastrointestinal haemorrhage [Unknown]
  - Obstruction gastric [Recovered/Resolved with Sequelae]
  - Pain [Unknown]

NARRATIVE: CASE EVENT DATE: 201311
